FAERS Safety Report 4424996-7 (Version None)
Quarter: 2004Q3

REPORT INFORMATION
  Report Type: 
  Country: None (occurrence: None)
  Receive Date: 20040811
  Receipt Date: 20040811
  Transmission Date: 20050211
  Serious: Yes (Other)
  Sender: FDA-Public Use
  Company Number: None

PATIENT
  Age: 76 Year
  Sex: Female
  Weight: 26.3086 kg

DRUGS (4)
  1. DEFEROXAMINE , 500 MG, 2 GRAM [Suspect]
     Indication: BLOOD IRON INCREASED
     Dosage: 1.8 G SC QD X 5 DAYS
     Route: 058
     Dates: start: 20040531, end: 20040606
  2. DEFEROXAMINE , 500 MG, 2 GRAM [Suspect]
     Indication: BLOOD IRON INCREASED
     Dosage: 1.8 G SC QD X 5 DAYS
     Route: 058
     Dates: start: 20040607, end: 20040613
  3. DEFEROXAMINE , 500MG, 2 GRAM [Suspect]
  4. GESSEBY SYRINGE [Concomitant]

REACTIONS (3)
  - INJECTION SITE ERYTHEMA [None]
  - INJECTION SITE INDURATION [None]
  - INJECTION SITE IRRITATION [None]
